FAERS Safety Report 7760276-X (Version None)
Quarter: 2011Q3

REPORT INFORMATION
  Report Type: 
  Country: None (occurrence: None)
  Receive Date: 20110919
  Receipt Date: 20110913
  Transmission Date: 20111222
  Serious: Yes (Life-Threatening)
  Sender: FDA-Public Use
  Company Number: JP-ASTRAZENECA-2011SE42461

PATIENT
  Age: 78 Year
  Sex: Male
  Weight: 60 kg

DRUGS (16)
  1. FERRUM [Concomitant]
     Indication: ANAEMIA
     Route: 048
     Dates: start: 20110501, end: 20110701
  2. SIGMART [Concomitant]
     Indication: ANGINA PECTORIS
     Route: 048
     Dates: start: 20110501
  3. FLIVAS [Concomitant]
     Indication: BENIGN PROSTATIC HYPERPLASIA
     Route: 048
     Dates: start: 19970101
  4. CALBLOCK [Suspect]
     Indication: HYPERTENSION
     Route: 048
  5. NEUROTROPIN [Concomitant]
     Indication: PAIN
     Route: 048
     Dates: start: 20100801
  6. AMARYL [Concomitant]
     Indication: DIABETES MELLITUS
     Route: 048
     Dates: start: 20060101
  7. ASPIRIN [Concomitant]
     Indication: ANGINA PECTORIS
     Route: 048
     Dates: start: 20110501
  8. ZOLPIDEM [Concomitant]
     Indication: INSOMNIA
     Route: 048
  9. OPALMON [Concomitant]
     Indication: PAIN
     Route: 048
     Dates: start: 20100801, end: 20110707
  10. PURSENNID [Concomitant]
     Indication: CONSTIPATION
     Route: 048
     Dates: start: 20110501
  11. CRESTOR [Suspect]
     Indication: HYPERLIPIDAEMIA
     Route: 048
  12. MAGNESIUM SULFATE [Concomitant]
     Indication: BACK PAIN
     Route: 048
     Dates: start: 20100801
  13. CASODEX [Suspect]
     Indication: PROSTATE CANCER
     Route: 048
     Dates: start: 20100523, end: 20110707
  14. LOXONIN [Suspect]
     Indication: BACK PAIN
     Route: 048
     Dates: start: 20100801, end: 20110707
  15. BASEN OD [Concomitant]
     Indication: DIABETES MELLITUS
     Route: 048
     Dates: start: 20060101
  16. MUCOSTA [Concomitant]
     Indication: BACK PAIN
     Route: 048
     Dates: start: 20100801

REACTIONS (1)
  - INTERSTITIAL LUNG DISEASE [None]
